FAERS Safety Report 18310704 (Version 1)
Quarter: 2020Q3

REPORT INFORMATION
  Report Type: Report from Study
  Country: US (occurrence: US)
  Receive Date: 20200925
  Receipt Date: 20200925
  Transmission Date: 20201103
  Serious: Yes (Other)
  Sender: FDA-Public Use
  Company Number: US-ASTRAZENECA-2020SF19082

PATIENT
  Sex: Female
  Weight: 72.1 kg

DRUGS (5)
  1. ZOFRAN [Concomitant]
     Active Substance: ONDANSETRON HYDROCHLORIDE
     Indication: NAUSEA
     Route: 048
     Dates: start: 202007
  2. TYLENOL [Concomitant]
     Active Substance: ACETAMINOPHEN
     Dosage: 500 MG EVERY TIME
     Route: 065
  3. TAGRISSO [Suspect]
     Active Substance: OSIMERTINIB
     Indication: LUNG CANCER METASTATIC
     Route: 048
     Dates: start: 20200323
  4. FENTANYL. [Concomitant]
     Active Substance: FENTANYL
     Indication: PAIN
     Route: 065
  5. TRAMADOL. [Concomitant]
     Active Substance: TRAMADOL
     Indication: PAIN
     Dosage: 50 MG PRN Q6 50.0MG AS REQUIRED
     Route: 065

REACTIONS (5)
  - Drug ineffective [Unknown]
  - Musculoskeletal chest pain [Not Recovered/Not Resolved]
  - Abdominal pain [Not Recovered/Not Resolved]
  - Neuropathy peripheral [Not Recovered/Not Resolved]
  - Neoplasm progression [Unknown]
